FAERS Safety Report 11691622 (Version 1)
Quarter: 2015Q4

REPORT INFORMATION
  Report Type: Spontaneous
  Country: US (occurrence: US)
  Receive Date: 20151102
  Receipt Date: 20151102
  Transmission Date: 20160304
  Serious: Yes (Hospitalization)
  Sender: FDA-Public Use
  Company Number: US-AMGEN-USASP2015113277

PATIENT

DRUGS (1)
  1. PROCRIT [Suspect]
     Active Substance: ERYTHROPOIETIN
     Indication: NEPHROGENIC ANAEMIA
     Dosage: 5000 - 20,000 UNIT, 3 TIMES WEEKLY
     Route: 058

REACTIONS (3)
  - Drug dose omission [Unknown]
  - Disease complication [Unknown]
  - Wrong technique in product usage process [Unknown]
